FAERS Safety Report 4380090-5 (Version None)
Quarter: 2004Q2

REPORT INFORMATION
  Report Type: 
  Country: None (occurrence: None)
  Receive Date: 20040614
  Receipt Date: 20040219
  Transmission Date: 20050107
  Serious: No
  Sender: FDA-Public Use
  Company Number: M04-341-043

PATIENT
  Age: 53 Year
  Sex: Male
  Weight: 75 kg

DRUGS (1)
  1. VELCADE [Suspect]
     Indication: MULTIPLE MYELOMA
     Dosage: 2MG: INTRAVENOUS BOLUS
     Route: 040
     Dates: start: 20031013

REACTIONS (3)
  - INJECTION SITE IRRITATION [None]
  - NEUROPATHY PERIPHERAL [None]
  - VEIN DISCOLOURATION [None]
